FAERS Safety Report 22099084 (Version 1)
Quarter: 2023Q1

REPORT INFORMATION
  Report Type: Report from Study
  Country: US (occurrence: US)
  Receive Date: 20230315
  Receipt Date: 20230315
  Transmission Date: 20230418
  Serious: Yes (Other)
  Sender: FDA-Public Use
  Company Number: US-BAYER-2023A029179

PATIENT
  Age: 17 Year
  Sex: Male

DRUGS (2)
  1. ASPIRIN [Interacting]
     Active Substance: ASPIRIN
     Dosage: UNK
  2. APIXABAN [Interacting]
     Active Substance: APIXABAN

REACTIONS (8)
  - Off label use [None]
  - Graft thrombosis [None]
  - Leukopenia [None]
  - Haemorrhage [None]
  - Epistaxis [None]
  - Haemorrhoidal haemorrhage [None]
  - Haemorrhage [None]
  - Haematuria [None]
